FAERS Safety Report 14737746 (Version 1)
Quarter: 2018Q2

REPORT INFORMATION
  Report Type: Report from Study
  Country: None (occurrence: BE)
  Receive Date: 20180409
  Receipt Date: 20180409
  Transmission Date: 20180711
  Serious: Yes (Other)
  Sender: FDA-Public Use
  Company Number: BE-ABBVIE-17K-013-2042726-00

PATIENT
  Sex: Male

DRUGS (8)
  1. DUODOPA [Suspect]
     Active Substance: CARBIDOPA\LEVODOPA
     Dosage: DOSES CONTINUOUSLY MONITORED AND ADAPTED
     Route: 050
     Dates: start: 20110303, end: 20151202
  2. DUODOPA [Suspect]
     Active Substance: CARBIDOPA\LEVODOPA
     Dosage: MD: 9 ML?CD: 3.8 ML/HR DURING 16 HRS?EDA: 4 ML
     Route: 050
     Dates: start: 20170712, end: 20171114
  3. DUODOPA [Suspect]
     Active Substance: CARBIDOPA\LEVODOPA
     Dosage: MD: 9 ML?CD: 3.4 ML/HR DURING 16 HRS?EDA: 4 ML
     Route: 050
     Dates: start: 20171114, end: 20180124
  4. DUODOPA [Suspect]
     Active Substance: CARBIDOPA\LEVODOPA
     Dosage: AM: 7ML; CD: 3.4ML/H FOR 16 HRS; ED: 4ML
     Route: 050
     Dates: start: 20180124
  5. PROLOPA 125 [Concomitant]
     Dosage: FORM STRENGTH: 100MG/25MG; AS RESCUE MEDICATION
     Route: 048
  6. DUODOPA [Suspect]
     Active Substance: CARBIDOPA\LEVODOPA
     Dosage: MD: 9 ML??CD: 4.2 ML/HR DURING 16 HRS??EDA: 4 ML
     Route: 050
     Dates: start: 20151202, end: 20170712
  7. PROLOPA 125 [Concomitant]
     Indication: PRODUCT USED FOR UNKNOWN INDICATION
     Dosage: FORM STRENGTH: 100MG/25MG; DAILY DOSE: 7 TABLETS + 0.5 TABLET
     Route: 048
  8. DUODOPA [Suspect]
     Active Substance: CARBIDOPA\LEVODOPA
     Indication: PARKINSON^S DISEASE
     Dosage: MD: 7 ML?CD: 4.2 ML/HR DURING 16 HRS?EDA: 4 ML
     Route: 050
     Dates: start: 20110228, end: 20110303

REACTIONS (4)
  - Dyskinesia [Recovering/Resolving]
  - Spinal operation [Not Recovered/Not Resolved]
  - Post procedural complication [Unknown]
  - Gait disturbance [Unknown]
